FAERS Safety Report 7801321-2 (Version None)
Quarter: 2011Q4

REPORT INFORMATION
  Report Type: 
  Country: None (occurrence: None)
  Receive Date: 20111006
  Receipt Date: 20111006
  Transmission Date: 20120403
  Serious: Yes (Hospitalization)
  Sender: FDA-Public Use
  Company Number: None

PATIENT
  Age: 74 Year
  Sex: Male
  Weight: 70.9 kg

DRUGS (11)
  1. AMIODARONE HCL [Suspect]
  2. FLOMAX [Concomitant]
  3. ENALAPRIL MALEATE [Concomitant]
  4. LEXAPRO [Concomitant]
  5. M.V.I. [Concomitant]
  6. ATIVAN [Concomitant]
  7. NIASPAN [Concomitant]
  8. WARFARIN SODIUM [Suspect]
     Indication: AORTIC VALVE REPLACEMENT
     Dosage: 5MG QPM PO CHRONIC
     Route: 048
  9. BUMEX [Concomitant]
  10. ASPIRIN [Suspect]
     Indication: CORONARY ARTERY DISEASE
     Dosage: 81MG QAM PO CHRONIC
     Route: 048
  11. COREG [Concomitant]

REACTIONS (10)
  - HAEMATOMA [None]
  - OCCULT BLOOD POSITIVE [None]
  - HAEMOPTYSIS [None]
  - REFUSAL OF TREATMENT BY PATIENT [None]
  - ASTHENIA [None]
  - ANAEMIA [None]
  - INTERNATIONAL NORMALISED RATIO INCREASED [None]
  - DIZZINESS [None]
  - FALL [None]
  - UPPER GASTROINTESTINAL HAEMORRHAGE [None]
